FAERS Safety Report 16940957 (Version 1)
Quarter: 2019Q4

REPORT INFORMATION
  Report Type: Spontaneous
  Country: CN (occurrence: CN)
  Receive Date: 20191021
  Receipt Date: 20191021
  Transmission Date: 20200122
  Serious: Yes (Hospitalization, Other)
  Sender: FDA-Public Use
  Company Number: CN-AMNEAL PHARMACEUTICALS-2019-AMRX-02181

PATIENT
  Sex: Female

DRUGS (1)
  1. ALBENZA [Suspect]
     Active Substance: ALBENDAZOLE
     Indication: HELMINTHIC INFECTION
     Dosage: UNK
     Route: 065

REACTIONS (22)
  - Helminthic infection [Unknown]
  - Vomiting [Unknown]
  - Condition aggravated [Unknown]
  - Pruritus [Unknown]
  - Abdominal pain upper [Recovered/Resolved]
  - Vaginal discharge [Unknown]
  - Genital discomfort [Unknown]
  - Urethral disorder [Unknown]
  - Product use issue [Unknown]
  - Gastric disorder [Unknown]
  - Headache [Unknown]
  - Product complaint [Unknown]
  - Taeniasis [Unknown]
  - Drug ineffective [Unknown]
  - Skin irritation [Unknown]
  - Product counterfeit [Unknown]
  - Nematodiasis [Unknown]
  - Pain [Unknown]
  - Noninfective encephalitis [Unknown]
  - Nausea [Unknown]
  - Hepatitis B [Unknown]
  - Confusional state [Unknown]
